FAERS Safety Report 21439088 (Version 1)
Quarter: 2022Q4

REPORT INFORMATION
  Report Type: Spontaneous
  Country: US (occurrence: None)
  Receive Date: 20221007
  Receipt Date: 20221007
  Transmission Date: 20230112
  Serious: No
  Sender: FDA-Public Use
  Company Number: None

PATIENT
  Age: 72 Year
  Sex: Female
  Weight: 57.61 kg

DRUGS (35)
  1. LENALIDOMIDE [Suspect]
     Active Substance: LENALIDOMIDE
     Indication: Plasma cell myeloma
     Dosage: OTHER FREQUENCY : 3W, 1W OFF;?
     Route: 048
  2. ACYCLOVIR [Concomitant]
     Active Substance: ACYCLOVIR
  3. AMLODIPINE BESYLATE [Concomitant]
     Active Substance: AMLODIPINE BESYLATE
  4. ASPIRIN [Concomitant]
     Active Substance: ASPIRIN
  5. AZITHROMYCIN [Concomitant]
     Active Substance: AZITHROMYCIN
  6. BETAMETHASONE [Concomitant]
     Active Substance: BETAMETHASONE
  7. Centrum Silver 50+Women [Concomitant]
  8. CLOBETASOL PROPIONATE [Concomitant]
     Active Substance: CLOBETASOL PROPIONATE
  9. COLACE [Concomitant]
     Active Substance: DOCUSATE SODIUM
  10. CORTIZONE 10 [Concomitant]
     Active Substance: HYDROCORTISONE
  11. ECZEMA [Concomitant]
     Active Substance: OATMEAL
  12. External Culturelle [Concomitant]
  13. Digestive health [Concomitant]
  14. Desitin External Cream [Concomitant]
  15. DEXAMETHASONE [Concomitant]
     Active Substance: DEXAMETHASONE
  16. DORZOLAMIDE HYDROCHLORIDE [Concomitant]
     Active Substance: DORZOLAMIDE HYDROCHLORIDE
  17. ELIQUIS [Concomitant]
     Active Substance: APIXABAN
  18. TUSSIN DM [Concomitant]
     Active Substance: DEXTROMETHORPHAN HYDROBROMIDE\GUAIFENESIN
  19. IMODIUM A-D [Concomitant]
     Active Substance: LOPERAMIDE HYDROCHLORIDE
  20. KLOR-CON M10 [Concomitant]
     Active Substance: POTASSIUM CHLORIDE
  21. LASIX [Concomitant]
     Active Substance: FUROSEMIDE
  22. LATANOPROST [Concomitant]
     Active Substance: LATANOPROST
  23. LORATADINE [Concomitant]
     Active Substance: LORATADINE
  24. LORAZEPAM [Concomitant]
     Active Substance: LORAZEPAM
  25. METOPROLOL SUCCINATE [Concomitant]
     Active Substance: METOPROLOL SUCCINATE
  26. MIRALAX [Concomitant]
     Active Substance: POLYETHYLENE GLYCOL 3350
  27. MONISTAT [Concomitant]
     Active Substance: MICONAZOLE NITRATE
  28. NINLARO [Concomitant]
     Active Substance: IXAZOMIB CITRATE
  29. OMEPRAZOLE [Concomitant]
     Active Substance: OMEPRAZOLE
  30. ONDANSETRON [Concomitant]
     Active Substance: ONDANSETRON
  31. Os-Cal Ultra [Concomitant]
  32. SENNA [Concomitant]
     Active Substance: SENNA LEAF\SENNOSIDES\SENNOSIDES A AND B
  33. SULFAMETHOXAZOLE\TRIMETHOPRIM [Concomitant]
     Active Substance: SULFAMETHOXAZOLE\TRIMETHOPRIM
  34. OXYCODONE HYDROCHLORIDE [Concomitant]
     Active Substance: OXYCODONE HYDROCHLORIDE
  35. Tylenol 8 [Concomitant]

REACTIONS (1)
  - Disease progression [None]
